FAERS Safety Report 15419953 (Version 3)
Quarter: 2019Q4

REPORT INFORMATION
  Report Type: Spontaneous
  Country: US (occurrence: US)
  Receive Date: 20180924
  Receipt Date: 20191218
  Transmission Date: 20200122
  Serious: No
  Sender: FDA-Public Use
  Company Number: US-ADAMAS PHARMA, LLC-2018ADA01425

PATIENT
  Age: 70 Year
  Sex: Male
  Weight: 121.09 kg

DRUGS (25)
  1. GOCOVRI [Suspect]
     Active Substance: AMANTADINE
     Dosage: 137 MG, 1X/DAY AT BEDTIME
     Route: 048
  2. ENTACAPONE. [Concomitant]
     Active Substance: ENTACAPONE
  3. GOCOVRI [Suspect]
     Active Substance: AMANTADINE
     Dosage: 274 MG, 1X/DAY AT BEDTIME
     Route: 048
     Dates: start: 20180611, end: 20180620
  4. FLUDROCORT [Concomitant]
  5. AMANTADINE. [Concomitant]
     Active Substance: AMANTADINE HYDROCHLORIDE
  6. MELATONIN [Concomitant]
     Active Substance: MELATONIN
  7. MIDODRINE [Concomitant]
     Active Substance: MIDODRINE
  8. CLONAZEPAM. [Concomitant]
     Active Substance: CLONAZEPAM
  9. THYROXINE [Concomitant]
     Active Substance: LEVOTHYROXINE
  10. AMLODIPINE [Concomitant]
     Active Substance: AMLODIPINE BESYLATE
  11. CARBIDOPA/LEVODOPA/ENTACAPONE [Concomitant]
     Active Substance: CARBIDOPA\ENTACAPONE\LEVODOPA
  12. SOTALOL HCL [Concomitant]
     Active Substance: SOTALOL
  13. LYRICA [Concomitant]
     Active Substance: PREGABALIN
  14. ROPINIROLE. [Concomitant]
     Active Substance: ROPINIROLE
  15. HYOSCYAMINE. [Concomitant]
     Active Substance: HYOSCYAMINE
  16. XARELTO [Concomitant]
     Active Substance: RIVAROXABAN
  17. GOCOVRI [Suspect]
     Active Substance: AMANTADINE
     Indication: DYSKINESIA
     Dosage: 137 MG, 1X/DAY AT BEDTIME
     Route: 048
     Dates: start: 20180604, end: 20180610
  18. GOCOVRI [Suspect]
     Active Substance: AMANTADINE
     Dosage: 137 MG, 1X/DAY AT BEDTIME
     Route: 048
     Dates: start: 20180621, end: 2018
  19. METOPROLOL SUCCINATE. [Concomitant]
     Active Substance: METOPROLOL SUCCINATE
  20. TYLENOL [Concomitant]
     Active Substance: ACETAMINOPHEN
  21. TRAMADOL. [Concomitant]
     Active Substance: TRAMADOL
  22. GOCOVRI [Suspect]
     Active Substance: AMANTADINE
     Dosage: 137 MG, 1X/DAY AT BEDTIME
     Route: 048
     Dates: start: 20180621
  23. GABAPENTIN. [Concomitant]
     Active Substance: GABAPENTIN
  24. FLUDROCORTISONE [Concomitant]
     Active Substance: FLUDROCORTISONE
  25. PRADAXA [Concomitant]
     Active Substance: DABIGATRAN ETEXILATE MESYLATE

REACTIONS (9)
  - Sleep disorder [Not Recovered/Not Resolved]
  - Peripheral swelling [Not Recovered/Not Resolved]
  - Fall [Not Recovered/Not Resolved]
  - Somnambulism [Not Recovered/Not Resolved]
  - Dry mouth [Not Recovered/Not Resolved]
  - Constipation [Recovering/Resolving]
  - Sleep talking [Not Recovered/Not Resolved]
  - Abnormal dreams [Not Recovered/Not Resolved]
  - Hallucination [Not Recovered/Not Resolved]

NARRATIVE: CASE EVENT DATE: 2018
